FAERS Safety Report 24846281 (Version 1)
Quarter: 2025Q1

REPORT INFORMATION
  Report Type: Report from Study
  Country: CA (occurrence: CA)
  Receive Date: 20250115
  Receipt Date: 20250115
  Transmission Date: 20250409
  Serious: Yes (Other)
  Sender: SANDOZ
  Company Number: CA-SANDOZ-SDZ2024CA093250

PATIENT
  Sex: Male

DRUGS (3)
  1. HYRIMOZ [Suspect]
     Active Substance: ADALIMUMAB-ADAZ
     Indication: Psoriatic arthropathy
     Dosage: NULL;BIWEEKLY (PRE-FILLED SYRINGE)
     Route: 058
     Dates: start: 20241031
  2. METHOTREXATE [Suspect]
     Active Substance: METHOTREXATE
     Indication: Product used for unknown indication
     Route: 065
  3. SULFASALAZINE [Suspect]
     Active Substance: SULFASALAZINE
     Indication: Product used for unknown indication
     Route: 065

REACTIONS (12)
  - Crohn^s disease [Unknown]
  - Choking [Unknown]
  - Prostate cancer metastatic [Unknown]
  - General physical health deterioration [Unknown]
  - Visual impairment [Unknown]
  - Movement disorder [Unknown]
  - Emphysema [Unknown]
  - Joint swelling [Unknown]
  - Poor quality sleep [Unknown]
  - Osteoarthritis [Unknown]
  - Fatigue [Unknown]
  - Anxiety [Unknown]
